FAERS Safety Report 4908193-4 (Version None)
Quarter: 2006Q1

REPORT INFORMATION
  Report Type: 
  Country: None (occurrence: None)
  Receive Date: 20060210
  Receipt Date: 20060201
  Transmission Date: 20060701
  Serious: Yes (Hospitalization)
  Sender: FDA-Public Use
  Company Number: US-JNJFOC-20060201408

PATIENT
  Age: 56 Year
  Sex: Male
  Weight: 81.65 kg

DRUGS (2)
  1. HALDOL [Suspect]
     Indication: ALCOHOL WITHDRAWAL SYNDROME
     Route: 030
  2. ATIVAN [Concomitant]
     Indication: DRUG USE FOR UNKNOWN INDICATION

REACTIONS (3)
  - DIVERTICULITIS [None]
  - MEMORY IMPAIRMENT [None]
  - PERITONITIS [None]
